FAERS Safety Report 17795346 (Version 1)
Quarter: 2020Q2

REPORT INFORMATION
  Report Type: Spontaneous
  Country: US (occurrence: US)
  Receive Date: 20200515
  Receipt Date: 20200515
  Transmission Date: 20200714
  Serious: No
  Sender: FDA-Public Use
  Company Number: US-ASTRAZENECA-2019SF78536

PATIENT
  Sex: Male
  Weight: 5.7 kg

DRUGS (2)
  1. SYNAGIS [Suspect]
     Active Substance: PALIVIZUMAB
     Route: 030
     Dates: start: 20191130
  2. EPINEPHRINE HCL [Concomitant]
     Active Substance: EPINEPHRINE

REACTIONS (1)
  - Respiratory syncytial virus infection [Unknown]
